FAERS Safety Report 23674050 (Version 1)
Quarter: 2024Q1

REPORT INFORMATION
  Report Type: Spontaneous
  Country: US (occurrence: None)
  Receive Date: 20240326
  Receipt Date: 20240326
  Transmission Date: 20240409
  Serious: Yes (Hospitalization)
  Sender: FDA-Public Use
  Company Number: None

PATIENT
  Age: 68 Year
  Sex: Female
  Weight: 58.5 kg

DRUGS (2)
  1. DOXIL [Suspect]
     Active Substance: DOXORUBICIN HYDROCHLORIDE
     Dates: end: 20170217
  2. TAMOXIFEN [Suspect]
     Active Substance: TAMOXIFEN

REACTIONS (5)
  - Pneumonia [None]
  - Sepsis [None]
  - Atelectasis [None]
  - Pulmonary embolism [None]
  - Atrial fibrillation [None]

NARRATIVE: CASE EVENT DATE: 20170305
